FAERS Safety Report 7994732 (Version 12)
Quarter: 2015Q2

REPORT INFORMATION
  Report Type: Report from Study
  Country: CH (occurrence: CH)
  Receive Date: 20110616
  Receipt Date: 20150626
  Transmission Date: 20150821
  Serious: Yes (Hospitalization)
  Sender: FDA-Public Use
  Company Number: CH-UCBSA-034390

PATIENT
  Age: 73 Year
  Sex: Male
  Weight: 86 kg

DRUGS (18)
  1. ROTIGOTINE PD [Suspect]
     Active Substance: ROTIGOTINE
     Dosage: 2 MG, ONCE DAILY (QD)
     Dates: start: 20100420, end: 20100427
  2. MADOPAR DR [Concomitant]
     Dosage: 250 MG, 2 1/2 TBL
     Dates: start: 20051007, end: 20051014
  3. MADOPAR DR [Concomitant]
     Dosage: 250 MG, 4X/DAY (QID)
     Dates: start: 20090425, end: 201010
  4. NIMOTOP [Concomitant]
     Active Substance: NIMODIPINE
     Indication: HYPERTENSION
     Dosage: 30 MG, 2X/DAY (BID)
     Dates: start: 20110519
  5. MADOPAR DR [Concomitant]
     Indication: PARKINSON^S DISEASE
     Dosage: 250 MG, 2X/DAY (BID)
     Dates: start: 20050929, end: 20051006
  6. MADOPAR DR [Concomitant]
     Dosage: 250 MG, 3X/DAY (TID)
     Dates: start: 20051015, end: 20090424
  7. TASMAR [Concomitant]
     Active Substance: TOLCAPONE
     Indication: PARKINSON^S DISEASE
     Dosage: 100 MG, 2X/DAY (BID)
     Dates: start: 20110228, end: 20120628
  8. METO ZEROC [Concomitant]
     Indication: HYPERTENSION
     Dosage: 200 MG, ONCE DAILY (QD)
     Dates: end: 20110629
  9. ROTIGOTINE PD [Suspect]
     Active Substance: ROTIGOTINE
     Dosage: 4 MG, ONCE DAILY (QD)
     Dates: start: 20100428, end: 20100803
  10. MADOPAR DR [Concomitant]
     Dosage: 250 MG, 5X/DAY
     Dates: start: 201010, end: 20110729
  11. NIMOTOP [Concomitant]
     Active Substance: NIMODIPINE
     Dosage: 30 MG, ONCE DAILY (QD)
     Dates: end: 20110518
  12. ROTIGOTINE PD [Suspect]
     Active Substance: ROTIGOTINE
     Indication: PARKINSON^S DISEASE
     Dosage: 8 MG, ONCE DAILY (QD)
     Dates: start: 20100804, end: 20120806
  13. MADOPAR DR [Concomitant]
     Dosage: 250 MG, 6X/DAY
     Dates: start: 20110730
  14. TEMESTA [Concomitant]
     Active Substance: LORAZEPAM
     Indication: ANXIETY
     Dosage: 1 MG, IF REQUIRED
  15. MADOPAR DR [Concomitant]
     Dosage: STRENGTH: 250 MG,OTHER 1/2 TABLET
     Dates: start: 20120206
  16. CLAROPRAM [Concomitant]
     Indication: DEPRESSION
     Dosage: 10 MG, ONCE DAILY (QD)
  17. CETRIN [Concomitant]
     Indication: HYPERSENSITIVITY
     Dosage: 10 MG, EV 2 DAYS (QOD)
  18. TASMAR [Concomitant]
     Active Substance: TOLCAPONE
     Dosage: 100 MG, 3X/DAY (TID)
     Dates: start: 20120629

REACTIONS (1)
  - Coeliac disease [Not Recovered/Not Resolved]

NARRATIVE: CASE EVENT DATE: 20110421
